FAERS Safety Report 14548583 (Version 1)
Quarter: 2018Q1

REPORT INFORMATION
  Report Type: Spontaneous
  Country: US (occurrence: US)
  Receive Date: 20180219
  Receipt Date: 20180219
  Transmission Date: 20180509
  Serious: No
  Sender: FDA-Public Use
  Company Number: US-ROCHE-1901479

PATIENT
  Age: 79 Year
  Sex: Female
  Weight: 70.37 kg

DRUGS (2)
  1. XOLAIR [Suspect]
     Active Substance: OMALIZUMAB
     Indication: ASTHMA
     Dosage: ONE SHOT IN EACH ARM
     Route: 065
     Dates: start: 20170106, end: 20170203
  2. ADVAIR HFA [Concomitant]
     Active Substance: FLUTICASONE PROPIONATE\SALMETEROL XINAFOATE
     Indication: ASTHMA
     Dosage: DOUBLED ;ONGOING: YES
     Route: 065

REACTIONS (4)
  - Pain in extremity [Recovered/Resolved]
  - Fall [Unknown]
  - Pain in extremity [Recovered/Resolved]
  - Pain in extremity [Not Recovered/Not Resolved]

NARRATIVE: CASE EVENT DATE: 20170110
